FAERS Safety Report 21017056 (Version 1)
Quarter: 2022Q2

REPORT INFORMATION
  Report Type: Spontaneous
  Country: US (occurrence: None)
  Receive Date: 20220627
  Receipt Date: 20220627
  Transmission Date: 20220721
  Serious: Yes (Life-Threatening, Hospitalization)
  Sender: FDA-Public Use
  Company Number: None

PATIENT
  Age: 61 Year
  Sex: Female
  Weight: 67.5 kg

DRUGS (9)
  1. METAXALONE [Suspect]
     Active Substance: METAXALONE
     Indication: Muscle relaxant therapy
     Dosage: OTHER QUANTITY : 1 TABLET(S);?FREQUENCY : AS NEEDED;?
     Route: 048
     Dates: start: 20220524, end: 20220622
  2. Xanaflex4 mg at night as needed [Concomitant]
  3. Gabapentin 100mg at bedtime [Concomitant]
  4. Tobacco use [Concomitant]
  5. JOINTLAX [Concomitant]
  6. VITAMIN B COMPLEX [Concomitant]
     Active Substance: CYANOCOBALAMIN\DEXPANTHENOL\NIACINAMIDE\PYRIDOXINE HYDROCHLORIDE\RIBOFLAVIN 5^-PHOSPHATE SODIUM\THIA
  7. GOLO SUPPLEMENTS [Concomitant]
  8. ASPIRIN [Concomitant]
     Active Substance: ASPIRIN
  9. BIOTIN [Concomitant]
     Active Substance: BIOTIN

REACTIONS (9)
  - Pruritus [None]
  - Loss of consciousness [None]
  - Asthenia [None]
  - Hyperhidrosis [None]
  - Vomiting [None]
  - Skin abrasion [None]
  - Joint injury [None]
  - Disorientation [None]
  - Chest pain [None]

NARRATIVE: CASE EVENT DATE: 20220622
